FAERS Safety Report 5015847-0 (Version None)
Quarter: 2006Q2

REPORT INFORMATION
  Report Type: 
  Country: None (occurrence: None)
  Receive Date: 20060526
  Receipt Date: 20060511
  Transmission Date: 20061013
  Serious: Yes (Hospitalization)
  Sender: FDA-Public Use
  Company Number: GBR-2006-0002223

PATIENT
  Age: 76 Year
  Sex: Female

DRUGS (9)
  1. MST CONTINUS TABLETS 60 MG(MORPHINE SULFATE) PROLONGED-RELEASE TABLET [Suspect]
     Indication: PAIN
     Dosage: 120 MG, DAILY, ORAL
     Route: 048
     Dates: start: 20040101, end: 20060406
  2. TRAMADOL HCL [Concomitant]
  3. PARACETAMOL [Concomitant]
  4. FOSAMAX [Concomitant]
  5. CEFUROXIME [Concomitant]
  6. OMEPRAZOLE [Concomitant]
  7. SENNA (SENNA) [Concomitant]
  8. CLOPIDOGREL (CLOPIDOGREL) [Concomitant]
  9. SPIRIVA [Concomitant]

REACTIONS (1)
  - CONVULSION [None]
